FAERS Safety Report 7951977-9 (Version None)
Quarter: 2011Q4

REPORT INFORMATION
  Report Type: 
  Country: None (occurrence: None)
  Receive Date: 20111201
  Receipt Date: 20111128
  Transmission Date: 20120403
  Serious: Yes (Other)
  Sender: FDA-Public Use
  Company Number: US-PFIZER INC-2011290229

PATIENT
  Sex: Female

DRUGS (2)
  1. MEDROXYPROGESTERONE ACETATE [Suspect]
     Indication: MENOPAUSAL SYMPTOMS
  2. MEDROXYPROGESTERONE ACETATE [Suspect]
     Indication: OFF LABEL USE
     Dosage: UNK

REACTIONS (5)
  - SUICIDAL IDEATION [None]
  - MENTAL DISORDER [None]
  - TREMOR [None]
  - CRYING [None]
  - GAIT DISTURBANCE [None]
